FAERS Safety Report 15487571 (Version 2)
Quarter: 2018Q4

REPORT INFORMATION
  Report Type: Report from Study
  Country: US (occurrence: US)
  Receive Date: 20181011
  Receipt Date: 20181222
  Transmission Date: 20190205
  Serious: Yes (Other)
  Sender: FDA-Public Use
  Company Number: US-MYLANLABS-2018M1074526

PATIENT
  Age: 30 Year
  Sex: Male
  Weight: 65 kg

DRUGS (3)
  1. CLOZAPINE 201824 [Suspect]
     Active Substance: CLOZAPINE
     Indication: SCHIZOPHRENIA
     Dosage: 150 MILLIGRAM, HS
     Route: 048
     Dates: start: 20180919, end: 20181003
  2. VALPROIC ACID. [Suspect]
     Active Substance: VALPROIC ACID
     Indication: HALLUCINATION, AUDITORY
     Dosage: UNK
     Dates: start: 20180916, end: 20181010
  3. FLUPHENAZINE [Suspect]
     Active Substance: FLUPHENAZINE
     Indication: DELUSION
     Dosage: UNK
     Dates: start: 20180916, end: 20181026

REACTIONS (1)
  - Neutropenia [Recovered/Resolved]

NARRATIVE: CASE EVENT DATE: 20181001
